FAERS Safety Report 23564189 (Version 17)
Quarter: 2025Q4

REPORT INFORMATION
  Report Type: Report from Study
  Country: US (occurrence: US)
  Receive Date: 20240226
  Receipt Date: 20251217
  Transmission Date: 20260117
  Serious: Yes (Hospitalization, Other)
  Sender: INSMED
  Company Number: US-INSMED, INC.-2023-01243-US

PATIENT
  Sex: Female

DRUGS (8)
  1. ARIKAYCE [Suspect]
     Active Substance: AMIKACIN
     Indication: Mycobacterium avium complex infection
     Dosage: 590 MILLIGRAM, QD
     Route: 055
     Dates: start: 20230405, end: 202304
  2. ARIKAYCE [Suspect]
     Active Substance: AMIKACIN
     Dosage: 590 MILLIGRAM, QD
     Route: 055
     Dates: start: 2023, end: 2023
  3. ARIKAYCE [Suspect]
     Active Substance: AMIKACIN
     Dosage: 590 MILLIGRAM, QD
     Route: 055
     Dates: start: 20240122, end: 2024
  4. ARIKAYCE [Suspect]
     Active Substance: AMIKACIN
     Dosage: 590 MILLIGRAM, TIW
     Route: 055
     Dates: start: 202402, end: 202402
  5. ARIKAYCE [Suspect]
     Active Substance: AMIKACIN
     Dosage: 590 MILLIGRAM, QD
     Route: 055
     Dates: start: 202405, end: 2024
  6. ARIKAYCE [Suspect]
     Active Substance: AMIKACIN
     Dosage: 590 MILLIGRAM, QD
     Route: 055
     Dates: start: 20240906, end: 20250728
  7. RIFAMPIN [Concomitant]
     Active Substance: RIFAMPIN
     Indication: Product used for unknown indication
     Dosage: 300 MILLIGRAM, TIW, ON MONDAY, WEDNESDAY AND FRIDAY
     Route: 065
  8. GABAPENTIN [Concomitant]
     Active Substance: GABAPENTIN
     Indication: Product used for unknown indication
     Dosage: 300 MILLIGRAM, QN
     Route: 065
     Dates: start: 2023

REACTIONS (30)
  - Brain operation [Recovering/Resolving]
  - Hospitalisation [Unknown]
  - Tremor [Unknown]
  - Movement disorder [Unknown]
  - Hospitalisation [Unknown]
  - Chills [Unknown]
  - Pneumonia [Unknown]
  - Adverse drug reaction [Not Recovered/Not Resolved]
  - Hot flush [Unknown]
  - Laboratory test abnormal [Unknown]
  - Immunodeficiency [Unknown]
  - SARS-CoV-2 test positive [Unknown]
  - Abdominal pain upper [Not Recovered/Not Resolved]
  - Headache [Unknown]
  - Oropharyngeal pain [Not Recovered/Not Resolved]
  - Dysphonia [Not Recovered/Not Resolved]
  - Illness [Not Recovered/Not Resolved]
  - Diarrhoea [Not Recovered/Not Resolved]
  - Aphonia [Recovered/Resolved]
  - Aphonia [Recovered/Resolved]
  - Aphonia [Not Recovered/Not Resolved]
  - Cough [Unknown]
  - Unevaluable event [Unknown]
  - Asthenia [Unknown]
  - Illness [Unknown]
  - Dyspnoea [Unknown]
  - Intentional dose omission [Unknown]
  - Product dose omission issue [Unknown]
  - Therapy interrupted [Unknown]
  - Device issue [Unknown]

NARRATIVE: CASE EVENT DATE: 20230101
